FAERS Safety Report 6666146-2 (Version None)
Quarter: 2010Q1

REPORT INFORMATION
  Report Type: 
  Country: None (occurrence: None)
  Receive Date: 20100330
  Receipt Date: 20100316
  Transmission Date: 20100710
  Serious: Yes (Hospitalization)
  Sender: FDA-Public Use
  Company Number: D1001379

PATIENT
  Age: 51 Year
  Sex: Female

DRUGS (4)
  1. BENZTROPINE MESYLATE [Suspect]
     Indication: HYPERHIDROSIS
     Dosage: 1 IN 1 D, ORAL
     Route: 048
     Dates: start: 20100301, end: 20100301
  2. CYMBALTA [Concomitant]
  3. RISPERDAL [Concomitant]
  4. SUBOXONE (NALOXONE, BUPRENORPHINE) [Concomitant]

REACTIONS (5)
  - CONCUSSION [None]
  - DIZZINESS [None]
  - DRY MOUTH [None]
  - GAIT DISTURBANCE [None]
  - POST CONCUSSION SYNDROME [None]
